FAERS Safety Report 18493884 (Version 1)
Quarter: 2020Q4

REPORT INFORMATION
  Report Type: Report from Study
  Country: US (occurrence: US)
  Receive Date: 20201111
  Receipt Date: 20201111
  Transmission Date: 20210114
  Serious: Yes (Death, Other)
  Sender: FDA-Public Use
  Company Number: US-TAKEDA-US202027426

PATIENT
  Age: 67 Year
  Sex: Male
  Weight: 66 kg

DRUGS (50)
  1. ZYVOX [Concomitant]
     Active Substance: LINEZOLID
     Indication: PYREXIA
  2. TPN [AMINO ACIDS NOS;CARBOHYDRATES NOS;MINERALS NOS;VITAMINS NOS] [Concomitant]
     Active Substance: AMINO ACIDS\CARBOHYDRATES\MINERALS\VITAMINS
     Indication: LEUKOCYTOSIS
  3. LASIX [Concomitant]
     Active Substance: FUROSEMIDE
     Indication: CHRONIC RESPIRATORY FAILURE
  4. HYDRALAZINE [Concomitant]
     Active Substance: HYDRALAZINE HYDROCHLORIDE
     Indication: HYPERTENSION
  5. REGLAN [Concomitant]
     Active Substance: METOCLOPRAMIDE HYDROCHLORIDE
     Indication: MALNUTRITION
  6. ZOSYN [Concomitant]
     Active Substance: PIPERACILLIN SODIUM\TAZOBACTAM SODIUM
     Indication: LEUKOCYTOSIS
  7. CEFTAZIDIME. [Concomitant]
     Active Substance: CEFTAZIDIME
     Indication: LEUKOCYTOSIS
  8. CEFEPIME [Concomitant]
     Active Substance: CEFEPIME HYDROCHLORIDE
     Indication: PSEUDOMONAS INFECTION
  9. TOBRAMYCIN. [Concomitant]
     Active Substance: TOBRAMYCIN
     Indication: PSEUDOMONAS INFECTION
  10. PULMICORT TURBUHALER [Concomitant]
     Active Substance: BUDESONIDE
     Indication: CHRONIC RESPIRATORY FAILURE
  11. DUONEB [Concomitant]
     Active Substance: ALBUTEROL SULFATE\IPRATROPIUM BROMIDE
     Indication: CHRONIC RESPIRATORY FAILURE
  12. LOPRESSOR [Concomitant]
     Active Substance: METOPROLOL TARTRATE
     Indication: CARDIOMYOPATHY
  13. CLONIDINE. [Concomitant]
     Active Substance: CLONIDINE
     Indication: HYPERTENSION
  14. NORVASC [Concomitant]
     Active Substance: AMLODIPINE BESYLATE
     Indication: HYPERTENSION
  15. ZOLOFT [Concomitant]
     Active Substance: SERTRALINE HYDROCHLORIDE
     Indication: ANXIETY
  16. TEDUGLUTIDE [Suspect]
     Active Substance: TEDUGLUTIDE
     Indication: SHORT-BOWEL SYNDROME
     Dosage: 1.68 MILLIGRAM (0.03 MG/KG DAILY DOSE, 7 DOSES PER WEEK), OTHER
     Route: 065
     Dates: start: 20180713, end: 20190520
  17. SODIUM CHLORIDE. [Concomitant]
     Active Substance: SODIUM CHLORIDE
     Indication: MALNUTRITION
     Dosage: 150 MILLILITER, Q1HR
     Route: 050
     Dates: start: 20170316
  18. VANCOMYCIN [Concomitant]
     Active Substance: VANCOMYCIN
     Indication: PYREXIA
  19. OMEPRAZOLE. [Concomitant]
     Active Substance: OMEPRAZOLE
     Indication: CROHN^S DISEASE
     Dosage: 20 MILLIGRAM, QD
     Route: 048
     Dates: start: 20180524
  20. CEFTAZIDIME. [Concomitant]
     Active Substance: CEFTAZIDIME
     Indication: PYREXIA
  21. ATROVENT [Concomitant]
     Active Substance: IPRATROPIUM BROMIDE
     Indication: CHRONIC RESPIRATORY FAILURE
  22. ALBUMIN [Concomitant]
     Active Substance: ALBUMIN HUMAN
     Indication: CHRONIC KIDNEY DISEASE
  23. HYDRALAZINE [Concomitant]
     Active Substance: HYDRALAZINE HYDROCHLORIDE
     Indication: CARDIOMYOPATHY
  24. PROTONIX [OMEPRAZOLE] [Concomitant]
     Active Substance: OMEPRAZOLE
     Indication: GASTROINTESTINAL HAEMORRHAGE
  25. TEDUGLUTIDE [Suspect]
     Active Substance: TEDUGLUTIDE
     Indication: SHORT-BOWEL SYNDROME
     Dosage: 1.68 MILLIGRAM (0.03 MG/KG DAILY DOSE, 7 DOSES PER WEEK), OTHER
     Route: 065
     Dates: start: 20180713, end: 20190520
  26. HUMIRA [Concomitant]
     Active Substance: ADALIMUMAB
     Indication: CROHN^S DISEASE
     Dosage: 0.8 MILLILITER, Q2WEEKS
     Route: 058
     Dates: start: 20181003
  27. VANCOMYCIN [Concomitant]
     Active Substance: VANCOMYCIN
     Indication: LEUKOCYTOSIS
  28. CLONIDINE. [Concomitant]
     Active Substance: CLONIDINE
     Indication: CARDIOMYOPATHY
  29. ENALAPRIL [Concomitant]
     Active Substance: ENALAPRIL
     Indication: HYPERTENSION
  30. ENALAPRIL [Concomitant]
     Active Substance: ENALAPRIL
     Indication: CARDIOMYOPATHY
  31. LOPRESSOR [Concomitant]
     Active Substance: METOPROLOL TARTRATE
     Indication: HYPERTENSION
  32. NORVASC [Concomitant]
     Active Substance: AMLODIPINE BESYLATE
     Indication: CARDIOMYOPATHY
  33. PRILOSEC [Concomitant]
     Active Substance: OMEPRAZOLE MAGNESIUM
     Indication: MALNUTRITION
  34. ZYPREXA [Concomitant]
     Active Substance: OLANZAPINE
     Indication: PRODUCT USED FOR UNKNOWN INDICATION
  35. TEDUGLUTIDE [Suspect]
     Active Substance: TEDUGLUTIDE
     Indication: SHORT-BOWEL SYNDROME
     Dosage: 1.68 MILLIGRAM (0.03 MG/KG DAILY DOSE, 7 DOSES PER WEEK), OTHER
     Route: 065
     Dates: start: 20180713, end: 20190520
  36. ZYVOX [Concomitant]
     Active Substance: LINEZOLID
     Indication: LEUKOCYTOSIS
  37. TPN [AMINO ACIDS NOS;CARBOHYDRATES NOS;MINERALS NOS;VITAMINS NOS] [Concomitant]
     Active Substance: AMINO ACIDS\CARBOHYDRATES\MINERALS\VITAMINS
     Indication: PYREXIA
  38. XOPENEX [Concomitant]
     Active Substance: LEVALBUTEROL HYDROCHLORIDE
     Indication: CHRONIC RESPIRATORY FAILURE
  39. BUMEX [Concomitant]
     Active Substance: BUMETANIDE
     Indication: CHRONIC KIDNEY DISEASE
  40. ZAROXOLYN [Concomitant]
     Active Substance: METOLAZONE
     Indication: CHRONIC KIDNEY DISEASE
  41. RBC [Concomitant]
     Active Substance: HUMAN RED BLOOD CELL
     Indication: ANAEMIA
  42. TEDUGLUTIDE [Suspect]
     Active Substance: TEDUGLUTIDE
     Indication: SHORT-BOWEL SYNDROME
     Dosage: 1.68 MILLIGRAM (0.03 MG/KG DAILY DOSE, 7 DOSES PER WEEK), OTHER
     Route: 065
     Dates: start: 20180713, end: 20190520
  43. FOLIC ACID. [Concomitant]
     Active Substance: FOLIC ACID
     Indication: MALNUTRITION
     Dosage: 1 MILLIGRAM, QD
     Route: 048
     Dates: start: 20131031
  44. ZOSYN [Concomitant]
     Active Substance: PIPERACILLIN SODIUM\TAZOBACTAM SODIUM
     Indication: PYREXIA
  45. MEROPENEM. [Concomitant]
     Active Substance: MEROPENEM
     Indication: PSEUDOMONAS INFECTION
  46. EPOGEN [Concomitant]
     Active Substance: ERYTHROPOIETIN
     Indication: ANAEMIA
  47. ATIVAN [Concomitant]
     Active Substance: LORAZEPAM
     Indication: ANXIETY
  48. CELEXA [Concomitant]
     Active Substance: CITALOPRAM HYDROBROMIDE
     Indication: ANXIETY
  49. MORPHINE [Concomitant]
     Active Substance: MORPHINE
     Indication: PRODUCT USED FOR UNKNOWN INDICATION
     Route: 065
  50. MORPHINE [Concomitant]
     Active Substance: MORPHINE
     Indication: ANXIETY

REACTIONS (1)
  - Respiratory failure [Fatal]

NARRATIVE: CASE EVENT DATE: 20200602
